FAERS Safety Report 19009508 (Version 1)
Quarter: 2021Q1

REPORT INFORMATION
  Report Type: Spontaneous
  Country: CA (occurrence: CA)
  Receive Date: 20210316
  Receipt Date: 20210316
  Transmission Date: 20210420
  Serious: Yes (Other)
  Sender: FDA-Public Use
  Company Number: CA-AUROBINDO-AUR-APL-2021-010278

PATIENT
  Age: 64 Year
  Sex: Female

DRUGS (2)
  1. SANDOSTATIN [Suspect]
     Active Substance: OCTREOTIDE ACETATE
     Indication: CARCINOID TUMOUR
     Dosage: 30 MILLIGRAM, 1 EVERY MONTH
     Route: 030
  2. AMLODIPINE [Suspect]
     Active Substance: AMLODIPINE BESYLATE
     Indication: HYPERTENSION
     Dosage: 1 EVERY DAY
     Route: 048

REACTIONS (13)
  - Fatigue [Unknown]
  - Blood chromogranin A increased [Unknown]
  - Asthenia [Unknown]
  - Cardiac disorder [Unknown]
  - Hypertension [Unknown]
  - Influenza [Unknown]
  - Injection site pain [Unknown]
  - Drug ineffective [Unknown]
  - Bronchitis [Unknown]
  - Pulmonary mass [Unknown]
  - Pyrexia [Unknown]
  - Injection site mass [Unknown]
  - Malaise [Unknown]
